FAERS Safety Report 6640119-8 (Version None)
Quarter: 2010Q1

REPORT INFORMATION
  Report Type: 
  Country: None (occurrence: None)
  Receive Date: 20100318
  Receipt Date: 20100305
  Transmission Date: 20100710
  Serious: Yes (Hospitalization, Disabling)
  Sender: FDA-Public Use
  Company Number: US-ELI_LILLY_AND_COMPANY-US200911005499

PATIENT
  Sex: Male
  Weight: 141.95 kg

DRUGS (9)
  1. ZYPREXA [Suspect]
     Dosage: 20 MG, DAILY (1/D)
     Dates: start: 20040501, end: 20070101
  2. ZYPREXA [Suspect]
     Dosage: 15 MG, UNK
  3. SEROQUEL [Concomitant]
     Dosage: 25 MG, UNK
  4. SEROQUEL [Concomitant]
     Dosage: 100 MG, UNK
  5. ABILIFY [Concomitant]
     Dosage: 30 MG, UNK
  6. ABILIFY [Concomitant]
     Dosage: 20 MG, UNK
  7. ABILIFY [Concomitant]
     Dosage: 15 MG, UNK
  8. ABILIFY [Concomitant]
     Dosage: 10 MG, UNK
  9. TRAZODONE HCL [Concomitant]
     Dosage: 150 MG, UNK

REACTIONS (8)
  - BLOOD TRIGLYCERIDES INCREASED [None]
  - CARDIAC DISORDER [None]
  - CELLULITIS [None]
  - CHEST PAIN [None]
  - DIABETES MELLITUS [None]
  - DIABETIC NEUROPATHY [None]
  - HYPERTENSION [None]
  - WEIGHT INCREASED [None]
